FAERS Safety Report 8593398-4 (Version None)
Quarter: 2012Q3

REPORT INFORMATION
  Report Type: 
  Country: None (occurrence: None)
  Receive Date: 20120814
  Receipt Date: 20120809
  Transmission Date: 20120928
  Serious: Yes (Hospitalization)
  Sender: FDA-Public Use
  Company Number: PHEH2012US014820

PATIENT
  Sex: Female
  Weight: 87.982 kg

DRUGS (7)
  1. PAXIL [Concomitant]
     Dosage: 20 MG, UNK
  2. GILENYA [Suspect]
     Indication: MULTIPLE SCLEROSIS
     Dosage: 0.5 MG, QD
     Route: 048
     Dates: start: 20120619
  3. CETIRIZINE HCL [Concomitant]
     Dosage: 5 MG, UNK
  4. TRENTAL [Concomitant]
     Dosage: 400 MG, UNK
  5. PREVACID [Concomitant]
     Dosage: 30 MG, UNK
  6. NUEDEXTA [Interacting]
     Dosage: UNK UKN, UNK
  7. LISINOPRIL [Concomitant]
     Dosage: 30 MG, UNK

REACTIONS (5)
  - CHEST DISCOMFORT [None]
  - BACK PAIN [None]
  - DRUG INTERACTION [None]
  - DYSPNOEA [None]
  - FATIGUE [None]
